FAERS Safety Report 7548393-0 (Version None)
Quarter: 2011Q2

REPORT INFORMATION
  Report Type: 
  Country: None (occurrence: None)
  Receive Date: 20110615
  Receipt Date: 20110607
  Transmission Date: 20111010
  Serious: Yes (Other)
  Sender: FDA-Public Use
  Company Number: JP-ASTELLAS-2011JP003831

PATIENT
  Age: 21 Year
  Sex: Male

DRUGS (6)
  1. PROGRAF [Suspect]
     Indication: IMMUNE TOLERANCE INDUCTION
     Route: 065
  2. METHYLPREDNISOLONE [Concomitant]
     Indication: IMMUNE TOLERANCE INDUCTION
     Route: 065
  3. IMMUNE GLOBULIN NOS [Concomitant]
     Indication: IMMUNE TOLERANCE INDUCTION
     Route: 042
  4. MYCOPHENOLATE MEFETIL [Concomitant]
     Indication: IMMUNE TOLERANCE INDUCTION
     Route: 065
  5. RITUXIMAB [Concomitant]
     Indication: IMMUNE TOLERANCE INDUCTION
     Dosage: 50 MG/M2, UNKNOWN/D
     Route: 065
  6. RITUXIMAB [Concomitant]
     Dosage: 500 MG, UNKNOWN/D
     Route: 065

REACTIONS (7)
  - THROMBOTIC MICROANGIOPATHY [None]
  - DRUG INEFFECTIVE [None]
  - ENTEROCOLITIS BACTERIAL [None]
  - TRANSPLANT REJECTION [None]
  - PROSTATITIS [None]
  - SEPSIS [None]
  - DEVICE RELATED INFECTION [None]
